FAERS Safety Report 5280412-7 (Version None)
Quarter: 2007Q1

REPORT INFORMATION
  Report Type: 
  Country: None (occurrence: None)
  Receive Date: 20061229
  Receipt Date: 20061002
  Transmission Date: 20070707
  Serious: Yes (Other)
  Sender: FDA-Public Use
  Company Number: 2006UW19124

PATIENT
  Age: 54 Year
  Sex: Male
  Weight: 98.429 kg

DRUGS (1)
  1. CRESTOR [Suspect]
     Indication: BLOOD CHOLESTEROL INCREASED
     Dates: start: 20060913

REACTIONS (4)
  - CARDIAC FLUTTER [None]
  - DISTURBANCE IN ATTENTION [None]
  - NAUSEA [None]
  - NECK PAIN [None]
